FAERS Safety Report 9579204 (Version 1)
Quarter: 2013Q4

REPORT INFORMATION
  Report Type: Spontaneous
  Country: US (occurrence: US)
  Receive Date: 20131001
  Receipt Date: 20131001
  Transmission Date: 20140711
  Serious: No
  Sender: FDA-Public Use
  Company Number: US-AMGEN-USASP2013016969

PATIENT
  Age: 61 Year
  Sex: Female
  Weight: 104.31 kg

DRUGS (7)
  1. ENBREL [Suspect]
     Indication: PRODUCT USED FOR UNKNOWN INDICATION
     Dosage: 50 MG, QWK
     Route: 058
  2. METHOTREXATE [Concomitant]
     Dosage: 2.5 MG, UNK
  3. LISINOPRIL [Concomitant]
     Dosage: 2.5 MG, UNK
  4. FLONASE [Concomitant]
     Dosage: 0.05 %, UNK
  5. ALBUTEROL                          /00139501/ [Concomitant]
     Dosage: 2 MG, UNK
  6. ATORVASTATIN [Concomitant]
     Dosage: 10 MG, UNK
  7. FOLIC ACID [Concomitant]
     Dosage: UNK

REACTIONS (3)
  - Sinusitis [Unknown]
  - Ear pain [Unknown]
  - Oropharyngeal pain [Unknown]
